FAERS Safety Report 6032529-7 (Version None)
Quarter: 2009Q1

REPORT INFORMATION
  Report Type: 
  Country: None (occurrence: None)
  Receive Date: 20090109
  Receipt Date: 20081125
  Transmission Date: 20090719
  Serious: No
  Sender: FDA-Public Use
  Company Number: A0758124A

PATIENT
  Age: 65 Year
  Sex: Female

DRUGS (6)
  1. TYKERB [Suspect]
     Indication: BREAST CANCER
     Dosage: 1250MG PER DAY
     Route: 048
     Dates: start: 20080101
  2. XELODA [Concomitant]
  3. CALCIUM [Concomitant]
  4. COREG [Concomitant]
  5. PRILOSEC [Concomitant]
  6. STEROID [Concomitant]

REACTIONS (1)
  - RASH [None]
